FAERS Safety Report 14913083 (Version 1)
Quarter: 2018Q2

REPORT INFORMATION
  Report Type: Report from Study
  Country: US (occurrence: US)
  Receive Date: 20180518
  Receipt Date: 20180518
  Transmission Date: 20180711
  Serious: Yes (Life-Threatening)
  Sender: FDA-Public Use
  Company Number: PHEH2018US017983

PATIENT
  Sex: Male

DRUGS (1)
  1. COSENTYX [Suspect]
     Active Substance: SECUKINUMAB
     Indication: PRODUCT USED FOR UNKNOWN INDICATION
     Route: 058

REACTIONS (6)
  - Psoriasis [Unknown]
  - Limb discomfort [Unknown]
  - Weight decreased [Unknown]
  - Musculoskeletal stiffness [Unknown]
  - Sepsis [Unknown]
  - Muscle strain [Unknown]
